FAERS Safety Report 10495361 (Version 4)
Quarter: 2015Q1

REPORT INFORMATION
  Report Type: Spontaneous
  Country: US (occurrence: US)
  Receive Date: 20141003
  Receipt Date: 20150109
  Transmission Date: 20150720
  Serious: No
  Sender: FDA-Public Use
  Company Number: US-PFIZER INC-2014270686

PATIENT
  Age: 19 Year
  Sex: Female
  Weight: 49.9 kg

DRUGS (3)
  1. DEPO-PROVERA [Suspect]
     Active Substance: MEDROXYPROGESTERONE ACETATE
     Indication: CONTRACEPTION
     Dosage: 150 MG, EVERY 12WEEKS
     Route: 030
     Dates: start: 20140929
  2. IRON [Concomitant]
     Active Substance: IRON
     Dosage: 18 MG, UNK
     Dates: end: 20140929
  3. PRENATAL [Concomitant]
     Active Substance: VITAMINS
     Dosage: UNK
     Dates: end: 20140929

REACTIONS (5)
  - Dizziness [Recovered/Resolved]
  - Pruritus [Not Recovered/Not Resolved]
  - Urticaria [Recovered/Resolved]
  - Ocular hyperaemia [Recovered/Resolved]
  - Erythema [Recovered/Resolved]

NARRATIVE: CASE EVENT DATE: 20140929
